FAERS Safety Report 10043730 (Version 1)
Quarter: 2014Q1

REPORT INFORMATION
  Report Type: Spontaneous
  Country: US (occurrence: None)
  Receive Date: 20140327
  Receipt Date: 20140327
  Transmission Date: 20141002
  Serious: Yes (Hospitalization)
  Sender: FDA-Public Use
  Company Number: None

PATIENT
  Age: 52 Year
  Sex: Female
  Weight: 87.3 kg

DRUGS (1)
  1. ALFA 2 INTERFERON 2B [Suspect]
     Dosage: 40 MU
     Dates: end: 20130725

REACTIONS (3)
  - Hypophosphataemia [None]
  - Visual field defect [None]
  - Retinopathy [None]
